FAERS Safety Report 7272457-2 (Version None)
Quarter: 2011Q1

REPORT INFORMATION
  Report Type: 
  Country: None (occurrence: None)
  Receive Date: 20110203
  Receipt Date: 20101220
  Transmission Date: 20110831
  Serious: Yes (Hospitalization)
  Sender: FDA-Public Use
  Company Number: PH-ROCHE-701454

PATIENT
  Sex: Female
  Weight: 51 kg

DRUGS (2)
  1. PLACEBO [Suspect]
     Indication: NON-SMALL CELL LUNG CANCER
     Dosage: 150 UNK, QD
     Route: 048
     Dates: start: 20080425
  2. BEVACIZUMAB [Suspect]
     Indication: NON-SMALL CELL LUNG CANCER
     Dosage: 840 UNK, Q3W
     Route: 042
     Dates: start: 20080124

REACTIONS (1)
  - BLOOD CREATININE INCREASED [None]
